FAERS Safety Report 15486695 (Version 1)
Quarter: 2018Q4

REPORT INFORMATION
  Report Type: Spontaneous
  Country: FR (occurrence: FR)
  Receive Date: 20181011
  Receipt Date: 20181011
  Transmission Date: 20190205
  Serious: Yes (Other)
  Sender: FDA-Public Use
  Company Number: FR-ZYDUS-029033

PATIENT
  Age: 78 Year
  Sex: Male
  Weight: 48 kg

DRUGS (5)
  1. HALOPERIDOL. [Interacting]
     Active Substance: HALOPERIDOL
     Indication: PSYCHOTIC DISORDER
     Dosage: 5 MG TABLET
     Route: 048
  2. LANSOPRAZOLE. [Suspect]
     Active Substance: LANSOPRAZOLE
     Indication: GASTROOESOPHAGEAL REFLUX DISEASE
     Route: 048
  3. TRIHEXYPHENIDYL [Interacting]
     Active Substance: TRIHEXYPHENIDYL
     Indication: PSYCHOTIC DISORDER
     Dosage: L P 5 MG PROLONGED-RELEASE CAPSULE
     Route: 048
  4. CARBAMAZEPINE. [Interacting]
     Active Substance: CARBAMAZEPINE
     Indication: PSYCHOTIC DISORDER
     Dosage: 200 MG, SCORED TABLET
     Route: 048
  5. CYAMEMAZINE [Interacting]
     Active Substance: CYAMEMAZINE
     Indication: PSYCHOTIC DISORDER
     Dosage: 25 MG, SCORED FILM-COATED TABLET
     Route: 048

REACTIONS (1)
  - International normalised ratio decreased [Recovered/Resolved]

NARRATIVE: CASE EVENT DATE: 20160616
